FAERS Safety Report 25614740 (Version 1)
Quarter: 2025Q3

REPORT INFORMATION
  Report Type: Spontaneous
  Country: EU (occurrence: EU)
  Receive Date: 20250729
  Receipt Date: 20250729
  Transmission Date: 20251021
  Serious: Yes (Other)
  Sender: CELLTRION
  Company Number: None

PATIENT

DRUGS (1)
  1. YUFLYMA [Suspect]
     Active Substance: ADALIMUMAB-AATY
     Indication: Axial spondyloarthritis
     Dosage: 40 MG, EVERY 2 WEEK
     Dates: start: 20250315

REACTIONS (5)
  - Hypotension [Recovering/Resolving]
  - Vision blurred [Recovering/Resolving]
  - Dyspnoea [Recovering/Resolving]
  - Heart rate decreased [Recovering/Resolving]
  - Hypoaesthesia [Recovering/Resolving]

NARRATIVE: CASE EVENT DATE: 20250315
